FAERS Safety Report 12864669 (Version 1)
Quarter: 2016Q4

REPORT INFORMATION
  Report Type: Report from Study
  Country: IN (occurrence: IN)
  Receive Date: 20161020
  Receipt Date: 20161020
  Transmission Date: 20170207
  Serious: Yes (Other)
  Sender: FDA-Public Use
  Company Number: IN-ACCORD-044963

PATIENT
  Age: 24 Year
  Sex: Male

DRUGS (2)
  1. FOLATE SODIUM/FOLIC ACID [Concomitant]
  2. METHOTREXATE. [Suspect]
     Active Substance: METHOTREXATE
     Indication: RHEUMATOID ARTHRITIS
     Route: 048

REACTIONS (2)
  - Hepatic fibrosis [Unknown]
  - Hepatic necrosis [Unknown]
